FAERS Safety Report 8960834 (Version 1)
Quarter: 2012Q4

REPORT INFORMATION
  Report Type: 
  Country: US (occurrence: US)
  Receive Date: 20121212
  Receipt Date: 20121212
  Transmission Date: 20130627
  Serious: Yes (Hospitalization)
  Sender: FDA-Public Use
  Company Number: US-FRI-1000040871

PATIENT
  Sex: Female

DRUGS (3)
  1. CELEXA [Suspect]
  2. NICOTINE PATCH [Suspect]
     Indication: SMOKING CESSATION THERAPY
     Route: 062
     Dates: start: 20121007
  3. NICOTINE PATCH [Suspect]
     Route: 062
     Dates: start: 20121014

REACTIONS (8)
  - Fall [Recovered/Resolved]
  - Syncope [Recovered/Resolved]
  - Heart rate decreased [Recovered/Resolved]
  - Dehydration [Unknown]
  - Hypotension [Unknown]
  - Decreased appetite [Recovered/Resolved]
  - Weight decreased [Recovered/Resolved]
  - Irritability [Unknown]
